FAERS Safety Report 18968440 (Version 6)
Quarter: 2021Q2

REPORT INFORMATION
  Report Type: Report from Study
  Country: NL (occurrence: NL)
  Receive Date: 20210304
  Receipt Date: 20210611
  Transmission Date: 20210717
  Serious: Yes (Hospitalization, Other)
  Sender: FDA-Public Use
  Company Number: NL-IPSEN BIOPHARMACEUTICALS, INC.-2021-05446

PATIENT
  Age: 84 Year
  Sex: Female

DRUGS (5)
  1. PRAVASTINE [Concomitant]
     Active Substance: PRAVASTATIN SODIUM
     Dosage: 1 X PER DAY
  2. SOMATULINE AUTOSOLUTION [Suspect]
     Active Substance: LANREOTIDE ACETATE
     Indication: NEUROENDOCRINE TUMOUR
     Dosage: 90MG EVERY 4 WEEKS
     Route: 058
     Dates: start: 20210201, end: 20210301
  3. HYDROCHLOROTHIAZIDE. [Concomitant]
     Active Substance: HYDROCHLOROTHIAZIDE
     Dosage: 1 X PER DAY
  4. LEVOTHYROXINE. [Concomitant]
     Active Substance: LEVOTHYROXINE
     Dosage: 50MCG 1X PER DAY
  5. SOMATULINE AUTOSOLUTION [Suspect]
     Active Substance: LANREOTIDE ACETATE
     Route: 058
     Dates: start: 20210329

REACTIONS (3)
  - Faecal vomiting [Recovering/Resolving]
  - Neoplasm progression [Not Recovered/Not Resolved]
  - Therapeutic response shortened [Unknown]

NARRATIVE: CASE EVENT DATE: 2021
